FAERS Safety Report 14213340 (Version 1)
Quarter: 2017Q4

REPORT INFORMATION
  Report Type: Spontaneous
  Country: CA (occurrence: CA)
  Receive Date: 20171122
  Receipt Date: 20171122
  Transmission Date: 20180321
  Serious: Yes (Other)
  Sender: FDA-Public Use
  Company Number: CA-PFIZER INC-2017494831

PATIENT
  Sex: Male

DRUGS (1)
  1. ADVIL [Suspect]
     Active Substance: IBUPROFEN
     Dosage: UNK

REACTIONS (6)
  - Choking [Unknown]
  - Foreign body in respiratory tract [Unknown]
  - Nausea [Unknown]
  - Retching [Unknown]
  - Product physical issue [Unknown]
  - Intentional product misuse [Unknown]
